FAERS Safety Report 14358636 (Version 1)
Quarter: 2018Q1

REPORT INFORMATION
  Report Type: Spontaneous
  Country: US (occurrence: US)
  Receive Date: 20180105
  Receipt Date: 20180105
  Transmission Date: 20180509
  Serious: No
  Sender: FDA-Public Use
  Company Number: US-SA-2017SA239710

PATIENT
  Age: 45 Year
  Sex: Female

DRUGS (1)
  1. DUPIXENT [Suspect]
     Active Substance: DUPILUMAB
     Indication: DERMATITIS ATOPIC
     Route: 058
     Dates: start: 20171113, end: 20171113

REACTIONS (4)
  - Feeling hot [Unknown]
  - Condition aggravated [Unknown]
  - Inflammation [Unknown]
  - Erythema [Unknown]

NARRATIVE: CASE EVENT DATE: 20171114
